FAERS Safety Report 7579542-6 (Version None)
Quarter: 2011Q2

REPORT INFORMATION
  Report Type: 
  Country: None (occurrence: None)
  Receive Date: 20110622
  Receipt Date: 20110607
  Transmission Date: 20111010
  Serious: Yes (Hospitalization)
  Sender: FDA-Public Use
  Company Number: 2011MA006907

PATIENT
  Age: 49 Year
  Sex: Female

DRUGS (6)
  1. GLYBURIDE [Concomitant]
  2. HYDROCHLORIDE [Concomitant]
  3. FERROUS SULFATE TAB [Concomitant]
  4. PHENYTOIN [Suspect]
     Indication: CONVULSION
     Dosage: 100 MG, BID;
  5. METFORMIN HCL [Concomitant]
  6. INSULIN [Concomitant]

REACTIONS (14)
  - STEVENS-JOHNSON SYNDROME [None]
  - HAEMOGLOBIN DECREASED [None]
  - PYREXIA [None]
  - LYMPHADENOPATHY [None]
  - BLOOD BILIRUBIN DECREASED [None]
  - HEPATIC NEOPLASM [None]
  - OEDEMA PERIPHERAL [None]
  - WHITE BLOOD CELL COUNT DECREASED [None]
  - HAEMATOCRIT DECREASED [None]
  - HEPATOMEGALY [None]
  - NAUSEA [None]
  - DRUG RASH WITH EOSINOPHILIA AND SYSTEMIC SYMPTOMS [None]
  - TOXIC EPIDERMAL NECROLYSIS [None]
  - HEPATIC ENZYME INCREASED [None]
